FAERS Safety Report 8924759 (Version 1)
Quarter: 2012Q4

REPORT INFORMATION
  Report Type: Spontaneous
  Country: US (occurrence: None)
  Receive Date: 20121116
  Receipt Date: 20121116
  Transmission Date: 20130627
  Serious: Yes (Hospitalization)
  Sender: FDA-Public Use
  Company Number: 141745

PATIENT
  Age: 3 Year
  Sex: Female

DRUGS (1)
  1. DAUNORUBICIN HCL [Suspect]
     Indication: ACUTE LYMPHOBLASTIC LEUKEMIA

REACTIONS (3)
  - Duodenal ulcer perforation [None]
  - Peritonitis [None]
  - Osteonecrosis [None]
